FAERS Safety Report 10005051 (Version 1)
Quarter: 2014Q1

REPORT INFORMATION
  Report Type: Report from Study
  Country: NL (occurrence: NL)
  Receive Date: 20140312
  Receipt Date: 20140312
  Transmission Date: 20141002
  Serious: Yes (Other)
  Sender: FDA-Public Use
  Company Number: NL-GILEAD-2014-0096205

PATIENT
  Sex: Male

DRUGS (1)
  1. AZTREONAM LYSINE [Suspect]
     Indication: CYSTIC FIBROSIS
     Dosage: UNK UNKNOWN, TID
     Route: 065
     Dates: start: 20130729

REACTIONS (1)
  - Lung transplant [Unknown]
